FAERS Safety Report 5616642-1 (Version None)
Quarter: 2008Q1

REPORT INFORMATION
  Report Type: 
  Country: None (occurrence: None)
  Receive Date: 20080207
  Receipt Date: 20071204
  Transmission Date: 20080703
  Serious: No
  Sender: FDA-Public Use
  Company Number: A0697299A

PATIENT
  Sex: Female

DRUGS (4)
  1. PAXIL CR [Suspect]
     Indication: BIPOLAR DISORDER
     Dosage: 25MG PER DAY
     Route: 048
     Dates: start: 20060301, end: 20071101
  2. TRAZODONE HCL [Concomitant]
  3. ENALAPRIL MALEATE [Concomitant]
  4. LEVOTHYROXINE SODIUM [Concomitant]

REACTIONS (4)
  - ABNORMAL DREAMS [None]
  - AMNESIA [None]
  - HYPOACUSIS [None]
  - PAIN [None]
